FAERS Safety Report 8866315 (Version 6)
Quarter: 2012Q4

REPORT INFORMATION
  Report Type: Report from Study
  Country: CA (occurrence: CA)
  Receive Date: 20121025
  Receipt Date: 20121128
  Transmission Date: 20130627
  Serious: Yes (Other)
  Sender: FDA-Public Use
  Company Number: CA-ROCHE-1148828

PATIENT
  Sex: Male
  Weight: 105 kg

DRUGS (6)
  1. BEVACIZUMAB [Suspect]
     Indication: GLIOBLASTOMA MULTIFORME
     Route: 042
     Dates: start: 20120810, end: 20121116
  2. DEXAMETHASONE [Concomitant]
  3. KEPPRA [Concomitant]
  4. ZANTAC [Concomitant]
  5. AFLEXA [Concomitant]
  6. TEMODAL [Concomitant]

REACTIONS (6)
  - Gait disturbance [Not Recovered/Not Resolved]
  - Cognitive disorder [Not Recovered/Not Resolved]
  - General physical health deterioration [Unknown]
  - Convulsion [Unknown]
  - Disease progression [Unknown]
  - Drug ineffective [Unknown]
